FAERS Safety Report 6707739-3 (Version None)
Quarter: 2010Q2

REPORT INFORMATION
  Report Type: 
  Country: None (occurrence: None)
  Receive Date: 20100503
  Receipt Date: 20090512
  Transmission Date: 20101027
  Serious: No
  Sender: FDA-Public Use
  Company Number: US-ASTRAZENECA-2006UW19189

PATIENT
  Age: 87 Year
  Sex: Female
  Weight: 61.2 kg

DRUGS (5)
  1. NEXIUM [Suspect]
     Indication: GASTROOESOPHAGEAL REFLUX DISEASE
     Route: 048
     Dates: start: 20090429, end: 20090504
  2. VITAMINS [Concomitant]
  3. OXYTROL [Concomitant]
     Indication: BLADDER DISORDER
  4. LIPITOR [Concomitant]
     Indication: BLOOD CHOLESTEROL
  5. LEVOTHYROXINE [Concomitant]
     Indication: THYROID DISORDER

REACTIONS (4)
  - DIVERTICULITIS [None]
  - IRRITABLE BOWEL SYNDROME [None]
  - RASH MACULAR [None]
  - RASH PRURITIC [None]
